FAERS Safety Report 17155879 (Version 1)
Quarter: 2019Q4

REPORT INFORMATION
  Report Type: Spontaneous
  Country: JP (occurrence: JP)
  Receive Date: 20191215
  Receipt Date: 20191215
  Transmission Date: 20200122
  Serious: Yes (Hospitalization, Other)
  Sender: FDA-Public Use
  Company Number: JP-SA-2019SA343417

PATIENT
  Age: 74 Year
  Sex: Male

DRUGS (2)
  1. NEDAPLATIN [Concomitant]
     Active Substance: NEDAPLATIN
     Indication: LUNG NEOPLASM MALIGNANT
     Dosage: UNK
     Route: 065
     Dates: start: 201705
  2. TAXOTERE [Suspect]
     Active Substance: DOCETAXEL
     Indication: LUNG NEOPLASM MALIGNANT
     Dosage: UNK
     Route: 041
     Dates: start: 201705

REACTIONS (6)
  - Inflammation [Recovering/Resolving]
  - Abdominal pain [Recovering/Resolving]
  - Necrotising colitis [Recovering/Resolving]
  - Ascites [Recovering/Resolving]
  - Colitis ischaemic [Recovering/Resolving]
  - Gastrointestinal wall thinning [Recovering/Resolving]

NARRATIVE: CASE EVENT DATE: 2017
